FAERS Safety Report 14335282 (Version 3)
Quarter: 2018Q1

REPORT INFORMATION
  Report Type: Spontaneous
  Country: US (occurrence: US)
  Receive Date: 20171229
  Receipt Date: 20180302
  Transmission Date: 20180509
  Serious: Yes (Death, Hospitalization, Other)
  Sender: FDA-Public Use
  Company Number: US-BRISTOL-MYERS SQUIBB COMPANY-BMS-2017-116422

PATIENT
  Sex: Female

DRUGS (2)
  1. SPRYCEL [Suspect]
     Active Substance: DASATINIB
     Indication: OVARIAN CANCER
     Dosage: UNK
     Route: 048
     Dates: start: 20170519, end: 20170711
  2. METOPROLOL SUCCINATE. [Concomitant]
     Active Substance: METOPROLOL SUCCINATE
     Indication: PRODUCT USED FOR UNKNOWN INDICATION
     Dosage: 100 MG, UNK
     Route: 048

REACTIONS (5)
  - Product use in unapproved indication [Unknown]
  - Vomiting [Unknown]
  - Urticaria [Unknown]
  - Nausea [Unknown]
  - Malignant neoplasm progression [Fatal]
